FAERS Safety Report 11381158 (Version 1)
Quarter: 2015Q3

REPORT INFORMATION
  Report Type: Spontaneous
  Country: GR (occurrence: GR)
  Receive Date: 20150814
  Receipt Date: 20150814
  Transmission Date: 20151125
  Serious: Yes (Other)
  Sender: FDA-Public Use
  Company Number: GR-CELGENE-GRC-2015081894

PATIENT

DRUGS (2)
  1. AZACITIDINE INJECTABLE [Suspect]
     Active Substance: AZACITIDINE
     Indication: MYELODYSPLASTIC SYNDROME
     Route: 058
  2. G-CSF [Concomitant]
     Active Substance: GRANULOCYTE COLONY-STIMULATING FACTOR NOS
     Indication: MYELODYSPLASTIC SYNDROME
     Route: 065

REACTIONS (14)
  - Upper gastrointestinal haemorrhage [Unknown]
  - Bone marrow failure [Unknown]
  - Febrile neutropenia [Unknown]
  - Sepsis [Unknown]
  - Bone marrow reticulin fibrosis [Unknown]
  - Injection site erythema [Unknown]
  - Cytopenia [Unknown]
  - Infection [Unknown]
  - Soft tissue infection [Unknown]
  - Myelodysplastic syndrome [Unknown]
  - Acute myeloid leukaemia [Unknown]
  - Tuberculosis [Unknown]
  - Respiratory tract infection [Unknown]
  - Diarrhoea [Unknown]
